FAERS Safety Report 4653391-0 (Version None)
Quarter: 2005Q2

REPORT INFORMATION
  Report Type: 
  Country: None (occurrence: None)
  Receive Date: 20050503
  Receipt Date: 20050427
  Transmission Date: 20051028
  Serious: Yes (Death)
  Sender: FDA-Public Use
  Company Number: 200411131BVD

PATIENT
  Age: 81 Year
  Sex: Male
  Weight: 53 kg

DRUGS (9)
  1. AVELOX [Suspect]
     Indication: BRONCHITIS
     Dosage: 400 MG, QD, ORAL
     Route: 048
     Dates: start: 20041001
  2. AVELOX [Suspect]
     Indication: PURULENCE
     Dosage: 400 MG, QD, ORAL
     Route: 048
     Dates: start: 20041001
  3. ASPIRIN [Concomitant]
  4. LIQUAEMIN INJ [Concomitant]
  5. MADOPAR [Concomitant]
  6. ACC [Concomitant]
  7. NEUROCIL [Concomitant]
  8. RISPERDAL [Concomitant]
  9. APONAL [Concomitant]

REACTIONS (4)
  - ARRHYTHMIA [None]
  - ASPHYXIA [None]
  - ASPIRATION [None]
  - SUDDEN CARDIAC DEATH [None]
